FAERS Safety Report 23610556 (Version 1)
Quarter: 2024Q1

REPORT INFORMATION
  Report Type: Other
  Country: CA (occurrence: CA)
  Receive Date: 20240308
  Receipt Date: 20240308
  Transmission Date: 20240410
  Serious: Yes (Other)
  Sender: FDA-Public Use
  Company Number: CA-002147023-PHHY2014CA164608

PATIENT
  Age: 38 Year
  Sex: Female
  Weight: 101.8 kg

DRUGS (7)
  1. XOLAIR [Suspect]
     Active Substance: OMALIZUMAB
     Indication: Asthma
     Dosage: 300 MG, EVERY 4 WEEKS
     Route: 058
     Dates: start: 20130228
  2. MOXIFLOXACIN [Suspect]
     Active Substance: MOXIFLOXACIN
     Indication: Product used for unknown indication
     Dosage: UNK
     Route: 048
  3. ERYTHROMYCIN ETHYLSUCCINATE [Suspect]
     Active Substance: ERYTHROMYCIN ETHYLSUCCINATE
     Indication: Product used for unknown indication
     Dosage: UNK
     Route: 065
  4. CODEINE [Suspect]
     Active Substance: CODEINE
     Indication: Product used for unknown indication
     Dosage: UNK
     Route: 065
  5. THEOPHYLLINE [Suspect]
     Active Substance: THEOPHYLLINE
     Indication: Product used for unknown indication
     Dosage: UNK
     Route: 065
  6. PREDNISONE [Concomitant]
     Active Substance: PREDNISONE
     Indication: Product used for unknown indication
     Dosage: UNK (8 WEEKS)
  7. PREDNISONE [Concomitant]
     Active Substance: PREDNISONE
     Dosage: UNK, QMO (IN 2 YEARS)

REACTIONS (10)
  - Anaphylactic shock [Unknown]
  - Pneumonitis [Unknown]
  - Forced expiratory volume decreased [Unknown]
  - Bronchitis [Unknown]
  - Throat clearing [Unknown]
  - Sinusitis [Unknown]
  - Asthma [Unknown]
  - Drug hypersensitivity [Unknown]
  - Drug intolerance [Unknown]
  - Allergic respiratory disease [Unknown]
